FAERS Safety Report 7878650-X (Version None)
Quarter: 2011Q4

REPORT INFORMATION
  Report Type: 
  Country: None (occurrence: None)
  Receive Date: 20111018
  Receipt Date: 20101210
  Transmission Date: 20120403
  Serious: Yes (Other)
  Sender: FDA-Public Use
  Company Number: 2010P1003254

PATIENT
  Age: 80 Year
  Sex: Female

DRUGS (9)
  1. TRAMADOL HCL [Concomitant]
  2. ARICEPT [Concomitant]
  3. MIRTAZAPINE [Concomitant]
  4. TOPROL-XL [Concomitant]
  5. LASIX [Concomitant]
  6. ACETAMINOPHEN [Concomitant]
  7. FENTANYL-75 [Suspect]
     Indication: PAIN
     Dosage: 1 PATCH;Q3D;TDER
     Route: 062
     Dates: start: 20100601, end: 20101207
  8. NAMENDA [Concomitant]
  9. POTASSIUM [Concomitant]

REACTIONS (1)
  - OVERDOSE [None]
